FAERS Safety Report 17286902 (Version 2)
Quarter: 2021Q4

REPORT INFORMATION
  Report Type: Spontaneous
  Country: ES (occurrence: ES)
  Receive Date: 20200120
  Receipt Date: 20211109
  Transmission Date: 20220303
  Serious: Yes (Hospitalization, Other)
  Sender: FDA-Public Use
  Company Number: None

PATIENT
  Age: 57 Year
  Sex: Male
  Weight: 60.5 kg

DRUGS (5)
  1. LANTUS SOLOSTAR [Suspect]
     Active Substance: INSULIN GLARGINE
     Indication: Type 2 diabetes mellitus
     Dosage: 0IU AT BREAKFAST, 0IU AT DINNER, 20IU AT LUNCH
     Route: 058
     Dates: start: 20191118
  2. INSULIN LISPRO [Suspect]
     Active Substance: INSULIN LISPRO
     Indication: Type 2 diabetes mellitus
     Dosage: 12IU AT BREAKFAST, 12IU AT DINNER, 12IU AT LUNCH
     Route: 058
     Dates: start: 20190513
  3. DIAZEPAM [Concomitant]
     Active Substance: DIAZEPAM
     Indication: Anxiety
     Dosage: 1 TABLET EVERY 12 HOURS
     Route: 065
     Dates: start: 20190328
  4. HYDROCHLOROTHIAZIDE\IRBESARTAN [Concomitant]
     Active Substance: HYDROCHLOROTHIAZIDE\IRBESARTAN
     Indication: Secondary hypertension
     Dosage: 1 TABLET EACH DAY
     Route: 048
     Dates: start: 20171124
  5. BENFEROL [Concomitant]
     Indication: Vitamin D deficiency
     Dosage: 1 CAPSULE EVERY 15 DAYS
     Route: 048
     Dates: start: 20191108

REACTIONS (2)
  - Diabetic ketoacidosis [Recovered/Resolved]
  - Nausea [Recovered/Resolved]
